FAERS Safety Report 8023816-1 (Version None)
Quarter: 2012Q1

REPORT INFORMATION
  Report Type: 
  Country: None (occurrence: None)
  Receive Date: 20120103
  Receipt Date: 20120103
  Transmission Date: 20120608
  Serious: Yes (Hospitalization)
  Sender: FDA-Public Use
  Company Number: None

PATIENT
  Age: 50 Year
  Sex: Female
  Weight: 79 kg

DRUGS (2)
  1. METHOXYAMINE 15MG/M2 EVERY 28 DAYS [Suspect]
     Indication: OVARIAN CANCER
     Dosage: 27.75 IV
     Route: 042
     Dates: start: 20111215
  2. TEMOZOLOMIDE [Suspect]
     Indication: OVARIAN CANCER
     Dosage: 280MG PO
     Route: 048
     Dates: start: 20111215, end: 20111219

REACTIONS (4)
  - ABDOMINAL PAIN UPPER [None]
  - VOMITING [None]
  - NAUSEA [None]
  - SMALL INTESTINAL OBSTRUCTION [None]
